FAERS Safety Report 7704658-0 (Version None)
Quarter: 2011Q3

REPORT INFORMATION
  Report Type: 
  Country: None (occurrence: None)
  Receive Date: 20110823
  Receipt Date: 20110818
  Transmission Date: 20111222
  Serious: Yes (Other)
  Sender: FDA-Public Use
  Company Number: DE-GLAXOSMITHKLINE-D0072435A

PATIENT
  Age: 45 Year
  Sex: Male

DRUGS (1)
  1. PAROXETINE HYDROCHLORIDE [Suspect]
     Route: 065

REACTIONS (4)
  - IMPULSE-CONTROL DISORDER [None]
  - SHOPLIFTING [None]
  - COMPULSIVE SEXUAL BEHAVIOUR [None]
  - MANIA [None]
